FAERS Safety Report 8500011-0 (Version None)
Quarter: 2012Q3

REPORT INFORMATION
  Report Type: 
  Country: None (occurrence: None)
  Receive Date: 20120710
  Receipt Date: 20120702
  Transmission Date: 20120928
  Serious: No
  Sender: FDA-Public Use
  Company Number: US-PFIZER INC-2012159043

PATIENT
  Sex: Male
  Weight: 108 kg

DRUGS (4)
  1. PLAVIX [Interacting]
     Indication: PROPHYLAXIS
     Dosage: 75 MG, 1X/DAY
     Route: 048
     Dates: start: 20120515
  2. PRILOSEC [Suspect]
     Indication: GASTROOESOPHAGEAL REFLUX DISEASE
     Dosage: 20 MG, 2X/DAY
     Dates: end: 20120523
  3. ASPIRIN [Interacting]
     Dosage: UNK
  4. LIPITOR [Interacting]
     Dosage: UNK
     Dates: end: 20120501

REACTIONS (4)
  - DRUG EFFECT DECREASED [None]
  - NAUSEA [None]
  - DRUG INTERACTION [None]
  - MUSCLE SPASMS [None]
